FAERS Safety Report 7096678-7 (Version None)
Quarter: 2010Q4

REPORT INFORMATION
  Report Type: 
  Country: None (occurrence: None)
  Receive Date: 20101111
  Receipt Date: 20101104
  Transmission Date: 20110411
  Serious: Yes (Life-Threatening, Hospitalization, Other)
  Sender: FDA-Public Use
  Company Number: JP-BAYER-201010612BYL

PATIENT
  Age: 55 Year
  Sex: Male
  Weight: 92 kg

DRUGS (4)
  1. NEXAVAR [Suspect]
     Indication: HEPATIC NEOPLASM MALIGNANT
     Dosage: TOTAL DAILY DOSE: 800 G  UNIT DOSE: 200 MG
     Route: 048
     Dates: start: 20100129, end: 20100205
  2. TAMSULOSIN HCL [Concomitant]
     Indication: PROSTATE CANCER
     Dosage: UNIT DOSE: 0.1 MG
     Route: 048
     Dates: start: 20090101
  3. LIVACT [Concomitant]
     Indication: HEPATIC CIRRHOSIS
     Dosage: UNIT DOSE: 4.15 G
     Route: 048
     Dates: start: 20100129, end: 20100205
  4. GLAKAY [Concomitant]
     Indication: HEPATIC CIRRHOSIS
     Dosage: UNIT DOSE: 15 MG
     Route: 048
     Dates: start: 20100129, end: 20100205

REACTIONS (4)
  - ALTERED STATE OF CONSCIOUSNESS [None]
  - AMMONIA INCREASED [None]
  - HYPERTENSION [None]
  - SUBARACHNOID HAEMORRHAGE [None]
